FAERS Safety Report 9540827 (Version 1)
Quarter: 2013Q3

REPORT INFORMATION
  Report Type: Report from Study
  Country: MX (occurrence: MX)
  Receive Date: 20130920
  Receipt Date: 20130920
  Transmission Date: 20140515
  Serious: Yes (Other)
  Sender: FDA-Public Use
  Company Number: PHHY2013MX104903

PATIENT
  Age: 69 Year
  Sex: Female

DRUGS (7)
  1. ACLASTA [Suspect]
     Indication: OSTEOPENIA
     Dosage: 5 MG/ 100ML, YEARLY
     Route: 042
     Dates: start: 2007
  2. ACLASTA [Suspect]
     Dosage: 5 MG/ 100ML, YEARLY
     Route: 042
     Dates: start: 20130906
  3. PRADAXA [Concomitant]
     Indication: PROPHYLAXIS
     Dosage: 1 DF, DAILY
     Dates: start: 201308
  4. CALTRATE +D [Concomitant]
     Indication: BONE DISORDER
     Dosage: 1 DF, DAILY
     Dates: start: 2007
  5. OMEGA 3 [Concomitant]
     Dosage: 2 DF, DAILY
     Dates: start: 2010
  6. KARET [Concomitant]
     Indication: THYROID DISORDER
     Dosage: 1 DF, DAILY
     Dates: start: 2009
  7. ROCALTROL [Concomitant]
     Dosage: 1 DF, DAILY
     Dates: start: 2007

REACTIONS (10)
  - Arrhythmia [Not Recovered/Not Resolved]
  - Ear disorder [Recovering/Resolving]
  - Depression [Recovering/Resolving]
  - Emotional distress [Recovering/Resolving]
  - Blood glucose increased [Recovering/Resolving]
  - Blood pressure systolic increased [Recovering/Resolving]
  - Decreased appetite [Recovering/Resolving]
  - Nausea [Recovering/Resolving]
  - Chills [Recovering/Resolving]
  - Pyrexia [Recovering/Resolving]
